FAERS Safety Report 19574387 (Version 4)
Quarter: 2021Q3

REPORT INFORMATION
  Report Type: Report from Study
  Country: US (occurrence: US)
  Receive Date: 20210719
  Receipt Date: 20210925
  Transmission Date: 20211014
  Serious: Yes (Hospitalization)
  Sender: FDA-Public Use
  Company Number: NVSC2021US159624

PATIENT
  Age: 12 Year
  Sex: Female

DRUGS (4)
  1. ILARIS [Suspect]
     Active Substance: CANAKINUMAB
     Dosage: 150 MG, EVERY 6 WEEKS
     Route: 058
     Dates: start: 20191209
  2. ILARIS [Suspect]
     Active Substance: CANAKINUMAB
     Dosage: 150 MG, EVERY 6 WEEKS (SOLUTION)
     Route: 065
     Dates: start: 20210916
  3. ILARIS [Suspect]
     Active Substance: CANAKINUMAB
     Indication: JUVENILE IDIOPATHIC ARTHRITIS
     Dosage: 150 MG, EVERY 6 WEEKS (SOLUTION)
     Route: 058
     Dates: start: 20191012
  4. ILARIS [Suspect]
     Active Substance: CANAKINUMAB
     Dosage: 150 MG, EVERY 6 WEEKS (SOLUTION)
     Route: 058
     Dates: start: 20210709

REACTIONS (5)
  - Inappropriate schedule of product administration [Unknown]
  - Product administration error [Unknown]
  - Gastrointestinal disorder [Unknown]
  - Autoimmune disorder [Unknown]
  - Pain [Unknown]

NARRATIVE: CASE EVENT DATE: 20210709
